FAERS Safety Report 6726858-9 (Version None)
Quarter: 2010Q2

REPORT INFORMATION
  Report Type: 
  Country: None (occurrence: None)
  Receive Date: 20100517
  Receipt Date: 20100504
  Transmission Date: 20101027
  Serious: Yes (Hospitalization)
  Sender: FDA-Public Use
  Company Number: US-BIOGENIDEC-2010BI013036

PATIENT
  Age: 45 Year
  Sex: Female

DRUGS (2)
  1. TYSABRI [Suspect]
     Indication: MULTIPLE SCLEROSIS
     Route: 042
     Dates: start: 20100203
  2. TYSABRI [Suspect]
     Route: 042

REACTIONS (4)
  - FALL [None]
  - JOINT ADHESION [None]
  - JOINT LOCK [None]
  - KNEE OPERATION [None]
